FAERS Safety Report 13419804 (Version 1)
Quarter: 2017Q2

REPORT INFORMATION
  Report Type: Report from Study
  Country: CA (occurrence: CA)
  Receive Date: 20170407
  Receipt Date: 20170407
  Transmission Date: 20170830
  Serious: Yes (Disabling)
  Sender: FDA-Public Use
  Company Number: CA-AMGEN-CANSL2017051705

PATIENT
  Age: 64 Year
  Sex: Female
  Weight: 64 kg

DRUGS (2)
  1. KYPROLIS [Suspect]
     Active Substance: CARFILZOMIB
     Dosage: UNK
     Route: 042
  2. KYPROLIS [Suspect]
     Active Substance: CARFILZOMIB
     Indication: LEUKAEMIA
     Dosage: 37.4 UNK, DOSE ONE OF CYCLE ONE
     Route: 042
     Dates: start: 20170330, end: 20170331

REACTIONS (5)
  - Infusion site haemorrhage [Unknown]
  - Peripheral swelling [Unknown]
  - Contusion [Unknown]
  - Muscle tightness [Unknown]
  - Off label use [Unknown]

NARRATIVE: CASE EVENT DATE: 201703
